FAERS Safety Report 11857630 (Version 1)
Quarter: 2015Q4

REPORT INFORMATION
  Report Type: Spontaneous
  Country: US (occurrence: None)
  Receive Date: 20151221
  Receipt Date: 20151221
  Transmission Date: 20160305
  Serious: Yes (Disabling)
  Sender: FDA-Public Use
  Company Number: None

PATIENT
  Age: 64 Year
  Sex: Female
  Weight: 57.15 kg

DRUGS (5)
  1. VITAMIN D3 [Concomitant]
     Active Substance: CHOLECALCIFEROL
  2. CIPROFLOXACIN HCL [Suspect]
     Active Substance: CIPROFLOXACIN HYDROCHLORIDE
     Indication: URINARY TRACT INFECTION
     Route: 048
     Dates: start: 20151209, end: 20151212
  3. CALCIUM [Concomitant]
     Active Substance: CALCIUM
  4. CLARITIN [Concomitant]
     Active Substance: LORATADINE
  5. LAMOTRIGINE. [Concomitant]
     Active Substance: LAMOTRIGINE

REACTIONS (9)
  - Rash [None]
  - Rash pruritic [None]
  - Myalgia [None]
  - Fatigue [None]
  - Paraesthesia [None]
  - Neuropathy peripheral [None]
  - Urticaria [None]
  - Insomnia [None]
  - Pain in extremity [None]

NARRATIVE: CASE EVENT DATE: 20151213
